FAERS Safety Report 13661268 (Version 3)
Quarter: 2017Q3

REPORT INFORMATION
  Report Type: Spontaneous
  Country: US (occurrence: US)
  Receive Date: 20170616
  Receipt Date: 20170828
  Transmission Date: 20171127
  Serious: No
  Sender: FDA-Public Use
  Company Number: US-PFIZER INC-2017260822

PATIENT
  Age: 68 Year
  Sex: Female
  Weight: 80 kg

DRUGS (2)
  1. LATANOPROST. [Suspect]
     Active Substance: LATANOPROST
     Indication: GLAUCOMA
     Dosage: 2 GTT, 1X/DAY (0.005, 1 DROP INTO EACH EYE AT BEDTIME)
     Dates: start: 20170608, end: 201706
  2. LATANOPROST. [Suspect]
     Active Substance: LATANOPROST
     Dosage: 2 GTT, 1X/DAY (2.5, 1 DROP IN EACH EYE AT BED)
     Dates: start: 20170606

REACTIONS (6)
  - Condition aggravated [Not Recovered/Not Resolved]
  - Abnormal sensation in eye [Recovered/Resolved]
  - Visual impairment [Not Recovered/Not Resolved]
  - Eye pain [Not Recovered/Not Resolved]
  - Ocular hyperaemia [Recovered/Resolved]
  - Eye irritation [Not Recovered/Not Resolved]

NARRATIVE: CASE EVENT DATE: 20170607
